FAERS Safety Report 4615119-X (Version None)
Quarter: 2005Q1

REPORT INFORMATION
  Report Type: 
  Country: None (occurrence: None)
  Receive Date: 20050322
  Receipt Date: 20040317
  Transmission Date: 20050727
  Serious: Yes (Other)
  Sender: FDA-Public Use
  Company Number: US-GLAXOSMITHKLINE-A0504423A

PATIENT
  Age: 29 Year
  Sex: Female
  Weight: 62.5 kg

DRUGS (2)
  1. PAXIL [Suspect]
     Indication: GENERALISED ANXIETY DISORDER
     Dosage: 20MG PER DAY
     Route: 048
  2. PAXIL CR [Suspect]
     Indication: ANXIETY
     Route: 048
     Dates: start: 20040601

REACTIONS (4)
  - ABORTION SPONTANEOUS [None]
  - DRUG DEPENDENCE [None]
  - DRUG EXPOSURE DURING PREGNANCY [None]
  - DRUG WITHDRAWAL SYNDROME [None]
